FAERS Safety Report 5244287-4 (Version None)
Quarter: 2007Q1

REPORT INFORMATION
  Report Type: 
  Country: None (occurrence: None)
  Receive Date: 20070222
  Receipt Date: 20070213
  Transmission Date: 20070707
  Serious: Yes (Other)
  Sender: FDA-Public Use
  Company Number: US-ROCHE-482411

PATIENT
  Age: 38 Year
  Sex: Female
  Weight: 116.1 kg

DRUGS (35)
  1. VALIUM [Suspect]
     Indication: DRUG USE FOR UNKNOWN INDICATION
     Route: 065
  2. NAPROSYN [Suspect]
     Indication: DRUG USE FOR UNKNOWN INDICATION
     Route: 065
  3. IBUPROFEN [Suspect]
     Indication: DRUG USE FOR UNKNOWN INDICATION
     Dosage: START DATE REPORTED AS ^FROM THE TIME SHE WAS A TEENAGER^
     Route: 065
     Dates: end: 20020615
  4. CELEBREX [Suspect]
     Indication: INFLAMMATION
     Dosage: CELECOXIB WAS DISCONTINUED AFTER A FEW MONTHS
     Route: 065
     Dates: start: 20020615
  5. SINGULAIR [Concomitant]
  6. LORTAB [Concomitant]
  7. ZOLOFT [Concomitant]
  8. AMITRIPTYLINE HCL [Concomitant]
  9. NEURONTIN [Concomitant]
  10. BACLOFEN [Concomitant]
  11. VITAMIN B-12 [Concomitant]
  12. ROBAXIN [Concomitant]
  13. SEREVENT [Concomitant]
     Dosage: DAILY DOSE REPORTED AS 'DISKETTE'
  14. ALBUTEROL [Concomitant]
  15. OXYGEN [Concomitant]
  16. NEXIUM [Concomitant]
  17. ZELNORM [Concomitant]
  18. FIBROLAX [Concomitant]
  19. DOCUSATE [Concomitant]
  20. REGLAN [Concomitant]
  21. DYAZIDE [Concomitant]
  22. ASPIRIN [Concomitant]
     Dosage: DRUG NAME REPORTED AS 'BABY ASPIRIN'
  23. VITAMIN E [Concomitant]
  24. MOBIC [Concomitant]
  25. MIRAPEX [Concomitant]
  26. MULTIVITAMIN [Concomitant]
  27. ASCORBIC ACID [Concomitant]
  28. LAXATIVE [Concomitant]
     Dosage: DRUG REPORTED AS 'UNKNOWN GENTLE LAXATIVE'
  29. LISINOPRIL [Concomitant]
  30. LIPITOR [Concomitant]
  31. LEVOTHYROXINE SODIUM [Concomitant]
  32. CLARITIN [Concomitant]
  33. VICODIN [Concomitant]
  34. FLONASE [Concomitant]
  35. FLOVENT [Concomitant]

REACTIONS (6)
  - DYSPEPSIA [None]
  - EROSIVE OESOPHAGITIS [None]
  - INTRACRANIAL ANEURYSM [None]
  - JOINT SWELLING [None]
  - NAUSEA [None]
  - OEDEMA PERIPHERAL [None]
